FAERS Safety Report 10249092 (Version 1)
Quarter: 2014Q2

REPORT INFORMATION
  Report Type: Spontaneous
  Country: US (occurrence: None)
  Receive Date: 20140619
  Receipt Date: 20140619
  Transmission Date: 20141212
  Serious: Yes (Other)
  Sender: FDA-Public Use
  Company Number: None

PATIENT
  Age: 70 Year
  Sex: Male
  Weight: 84.37 kg

DRUGS (1)
  1. TRAZODONE [Suspect]
     Indication: PRODUCT USED FOR UNKNOWN INDICATION
     Dosage: 1 TAB. AT BEDTIME, AT BEDTIME, TAKEN BY MOUTH
     Route: 048
     Dates: end: 20140617

REACTIONS (4)
  - Dizziness [None]
  - Disturbance in attention [None]
  - Insomnia [None]
  - Vision blurred [None]
